FAERS Safety Report 7228702-2 (Version None)
Quarter: 2011Q1

REPORT INFORMATION
  Report Type: 
  Country: None (occurrence: None)
  Receive Date: 20110117
  Receipt Date: 20110106
  Transmission Date: 20110831
  Serious: No
  Sender: FDA-Public Use
  Company Number: US-BIOGENIDEC-2011BI001446

PATIENT
  Sex: Female

DRUGS (1)
  1. TYSABRI [Suspect]
     Indication: MULTIPLE SCLEROSIS
     Route: 042
     Dates: start: 20100730

REACTIONS (9)
  - SYNCOPE [None]
  - FALL [None]
  - DYSPNOEA [None]
  - LABYRINTHITIS [None]
  - FEAR [None]
  - APHAGIA [None]
  - DIZZINESS [None]
  - HEAD INJURY [None]
  - CHEST PAIN [None]
